FAERS Safety Report 6920336-X (Version None)
Quarter: 2010Q3

REPORT INFORMATION
  Report Type: 
  Country: None (occurrence: None)
  Receive Date: 20100809
  Receipt Date: 20100804
  Transmission Date: 20110219
  Serious: Yes (Death, Other)
  Sender: FDA-Public Use
  Company Number: 8053910

PATIENT
  Sex: Male
  Weight: 86.5 kg

DRUGS (23)
  1. CERTOLIZUMAB PEGOL [Suspect]
     Indication: RHEUMATOID ARTHRITIS
     Dosage: (SUBCUTANEOUS)
     Route: 058
     Dates: end: 20091028
  2. LEFLUNOMIDE [Concomitant]
  3. HYDROXYCHLOROQUINE [Concomitant]
  4. FOLIC ACID [Concomitant]
  5. OXYCODONE HCL AND ACETAMINOPHEN [Concomitant]
  6. METHADONE HCL [Concomitant]
  7. OXYCODONE [Concomitant]
  8. VICODIN [Concomitant]
  9. ZINC [Concomitant]
  10. MULTI-VITAMINS [Concomitant]
  11. MULTI-VITAMINS [Concomitant]
  12. PROBIOTICA [Concomitant]
  13. SAW PALMETTO /00833501/ [Concomitant]
  14. TERAZOSIN HCL [Concomitant]
  15. LOVASTATIN [Concomitant]
  16. FAMOTIDINE [Concomitant]
  17. CLARITIN /00917501/ [Concomitant]
  18. ALBUTEROL [Concomitant]
  19. ATROVENT [Concomitant]
  20. ASPIRIN [Concomitant]
  21. FUROSEMIDE [Concomitant]
  22. COTRIM [Concomitant]
  23. PRILOSEC [Concomitant]

REACTIONS (1)
  - BLADDER CANCER [None]
